FAERS Safety Report 25865889 (Version 4)
Quarter: 2025Q4

REPORT INFORMATION
  Report Type: Spontaneous
  Country: JP (occurrence: JP)
  Receive Date: 20250930
  Receipt Date: 20251017
  Transmission Date: 20260117
  Serious: Yes (Other)
  Sender: MALLINCKRODT
  Company Number: JP-MALLINCKRODT-MNK202506015

PATIENT
  Age: 57 Year
  Sex: Male

DRUGS (3)
  1. NITRIC OXIDE [Suspect]
     Active Substance: NITRIC OXIDE
     Indication: Pulmonary hypertension
     Dosage: UNKNOWN (WEANING)
     Route: 055
  2. NITRIC OXIDE [Suspect]
     Active Substance: NITRIC OXIDE
  3. DOBUTAMINE [Concomitant]
     Active Substance: DOBUTAMINE HYDROCHLORIDE
     Dosage: UNK (TAPERING)

REACTIONS (2)
  - Pericardial effusion [Recovered/Resolved]
  - COVID-19 [Recovered/Resolved]
